FAERS Safety Report 18450831 (Version 1)
Quarter: 2020Q4

REPORT INFORMATION
  Report Type: Report from Study
  Country: CA (occurrence: CA)
  Receive Date: 20201030
  Receipt Date: 20201030
  Transmission Date: 20210114
  Serious: Yes (Other)
  Sender: FDA-Public Use
  Company Number: CA-ROCHE-2701380

PATIENT
  Age: 71 Year
  Sex: Female
  Weight: 138 kg

DRUGS (22)
  1. VALACYCLOVIR [Concomitant]
     Active Substance: VALACYCLOVIR HYDROCHLORIDE
     Route: 048
     Dates: start: 20190410
  2. OCUNOX [PARAFFIN;PARAFFIN, LIQUID;RETINOL PALMITATE;WHITE SOFT PARAFFI [Concomitant]
     Indication: SJOGREN^S SYNDROME
     Dosage: 5 OTHER
     Route: 047
     Dates: start: 20191018
  3. DOXORUBICIN [Suspect]
     Active Substance: DOXORUBICIN
     Indication: DIFFUSE LARGE B-CELL LYMPHOMA
     Dosage: ON 24/JUL/2019, SHE RECEIVED MOST RECENT DOSE (111 MG) OF DOXORUBICIN PRIOR TO SAE ONSET.
     Route: 042
     Dates: start: 20190410
  4. PREDNISONE. [Suspect]
     Active Substance: PREDNISONE
     Indication: DIFFUSE LARGE B-CELL LYMPHOMA
     Dosage: ON 24/JUL/2019, SHE RECEIVED MOST RECENT DOSE OF PREDNISONE (100 MG) PRIOR TO SAE ONSET.
     Route: 048
     Dates: start: 20190410
  5. RITUXIMAB. [Suspect]
     Active Substance: RITUXIMAB
     Indication: DIFFUSE LARGE B-CELL LYMPHOMA
     Dosage: ON 04/SEP/2019, SHE RECEIVED MOST RECENT DOSE OF RITUXIMAB (833 MG) PRIOR TO SAE ONSET.
     Route: 041
     Dates: start: 20190410
  6. CYMBALTA [Concomitant]
     Active Substance: DULOXETINE HYDROCHLORIDE
     Indication: PARAESTHESIA
     Route: 048
     Dates: start: 20200902
  7. PREGABALIN. [Concomitant]
     Active Substance: PREGABALIN
     Indication: FIBROMYALGIA
     Route: 048
     Dates: start: 2017
  8. ACETAMINOPHEN. [Concomitant]
     Active Substance: ACETAMINOPHEN
     Indication: FIBROMYALGIA
     Route: 048
     Dates: start: 2007
  9. DICLOFENAC [Concomitant]
     Active Substance: DICLOFENAC
     Indication: OSTEOARTHRITIS
     Route: 061
     Dates: start: 2012
  10. CALCIUM CARBONATE. [Concomitant]
     Active Substance: CALCIUM CARBONATE
     Indication: OSTEOARTHRITIS
     Route: 048
     Dates: start: 2000
  11. NEUPOGEN [Concomitant]
     Active Substance: FILGRASTIM
     Indication: NEUTROPENIA
     Route: 058
     Dates: start: 20190614
  12. FUCIDIN [Concomitant]
     Active Substance: FUSIDATE SODIUM
     Indication: SLEEP APNOEA SYNDROME
     Route: 061
     Dates: start: 2014
  13. STEMETIL [Concomitant]
     Active Substance: PROCHLORPERAZINE
     Indication: NAUSEA
     Route: 048
     Dates: start: 20190410
  14. SYNTHROID [Concomitant]
     Active Substance: LEVOTHYROXINE SODIUM
     Indication: BENIGN NEOPLASM OF THYROID GLAND
     Route: 048
     Dates: start: 2012
  15. PLACEBO [Suspect]
     Active Substance: UNSPECIFIED INGREDIENT
     Indication: DIFFUSE LARGE B-CELL LYMPHOMA
     Dosage: ON 24/JUL/2019, SHE RECEIVED MOST RECENT DOSE OF BLINDED VINCRISTINE PRIOR TO SAE ONSET
     Route: 042
     Dates: start: 20190410
  16. VITAMIN D3 [Concomitant]
     Active Substance: CHOLECALCIFEROL
     Dosage: 10000 U
     Route: 048
     Dates: start: 2000
  17. AVAMYS [Concomitant]
     Active Substance: FLUTICASONE FUROATE
     Indication: SLEEP APNOEA SYNDROME
     Dates: start: 2014
  18. SEPTRA DS [Concomitant]
     Active Substance: SULFAMETHOXAZOLE\TRIMETHOPRIM
     Route: 048
     Dates: start: 20190430
  19. POLATUZUMAB VEDOTIN. [Suspect]
     Active Substance: POLATUZUMAB VEDOTIN
     Indication: DIFFUSE LARGE B-CELL LYMPHOMA
     Dosage: ON 24/JUL/2019, SHE RECEIVED MOST RECENT DOSE OF BLINDED POLATUZUMAB VEDOTIN PRIOR TO SAE ONSET.
     Route: 042
     Dates: start: 20190411
  20. CYCLOPHOSPHAMIDE. [Suspect]
     Active Substance: CYCLOPHOSPHAMIDE
     Indication: DIFFUSE LARGE B-CELL LYMPHOMA
     Dosage: ON 24/JUL/2019, SHE RECEIVED MOST RECENT DOSE (1665 MG) OF CYCLOPHOSPHAMIDE PRIOR TO SAE ONSET.
     Route: 042
     Dates: start: 20190410
  21. PANTOPRAZOLE [Concomitant]
     Active Substance: PANTOPRAZOLE
     Indication: DYSPEPSIA
     Route: 048
     Dates: start: 2004
  22. CLOTRIMAZOLE. [Concomitant]
     Active Substance: CLOTRIMAZOLE
     Indication: VAGINAL INFECTION
     Route: 067

REACTIONS (1)
  - Transient global amnesia [Recovered/Resolved]

NARRATIVE: CASE EVENT DATE: 20200122
